FAERS Safety Report 12355989 (Version 1)
Quarter: 2016Q2

REPORT INFORMATION
  Report Type: Spontaneous
  Country: US (occurrence: US)
  Receive Date: 20160511
  Receipt Date: 20160511
  Transmission Date: 20160815
  Serious: No
  Sender: FDA-Public Use
  Company Number: US-ACTELION-A-NJ2015-118183

PATIENT
  Age: 73 Year
  Sex: Male

DRUGS (17)
  1. DOXAZOSIN MESYLATE. [Concomitant]
     Active Substance: DOXAZOSIN MESYLATE
  2. NIACIN. [Concomitant]
     Active Substance: NIACIN
  3. POTASSIUM [Concomitant]
     Active Substance: POTASSIUM
  4. MULTIVITAMIN [Concomitant]
     Active Substance: VITAMINS
  5. VALCHLOR [Suspect]
     Active Substance: MECHLORETHAMINE
     Indication: MYCOSIS FUNGOIDES
     Dosage: UNK
     Route: 061
     Dates: start: 201504
  6. LEVOTHYROXINE. [Concomitant]
     Active Substance: LEVOTHYROXINE
  7. VITAMIN B12 [Concomitant]
     Active Substance: CYANOCOBALAMIN
  8. ZINC [Concomitant]
     Active Substance: ZINC\ZINC CHLORIDE
  9. CALCIUM [Concomitant]
     Active Substance: CALCIUM
  10. ASPIRIN. [Concomitant]
     Active Substance: ASPIRIN
  11. VITAMIN D3 [Concomitant]
     Active Substance: CHOLECALCIFEROL
  12. FISH OIL [Concomitant]
     Active Substance: FISH OIL
  13. MSM [Concomitant]
     Active Substance: DIMETHYL SULFONE
  14. L-ARGININE [Concomitant]
     Active Substance: ARGININE
  15. BETAMETHASONE. [Concomitant]
     Active Substance: BETAMETHASONE
  16. GLUCOSAMINE [Concomitant]
     Active Substance: GLUCOSAMINE
  17. MAGNESIUM [Concomitant]
     Active Substance: MAGNESIUM

REACTIONS (3)
  - Rash [Recovered/Resolved]
  - Application site erosion [Recovered/Resolved]
  - Skin burning sensation [Recovered/Resolved]
